FAERS Safety Report 7239439-8 (Version None)
Quarter: 2011Q1

REPORT INFORMATION
  Report Type: 
  Country: None (occurrence: None)
  Receive Date: 20110121
  Receipt Date: 20101203
  Transmission Date: 20110831
  Serious: Yes (Hospitalization, Other)
  Sender: FDA-Public Use
  Company Number: US-BAYER-201020257NA

PATIENT
  Sex: Female
  Weight: 77.273 kg

DRUGS (8)
  1. YASMIN [Suspect]
     Route: 048
     Dates: start: 20061001, end: 20080301
  2. DROSPIRENONE AND ETHINYL ESTRADIOL [Suspect]
     Route: 048
     Dates: start: 20080701, end: 20100301
  3. TRAMADOL [Concomitant]
     Dosage: UNK
     Dates: start: 20100202
  4. HYDROCODONE BITARTRATE AND ACETAMINOPHEN [Concomitant]
     Dosage: UNK
     Dates: start: 20100310, end: 20100318
  5. OXYBUTYNIN [Concomitant]
     Dosage: UNK
     Dates: start: 20100326
  6. UNCODEABLE ^UNCLASSIFIABLE^ [Concomitant]
     Indication: CONVULSION
     Dates: start: 20090201, end: 20090401
  7. KARIVA [Concomitant]
     Dosage: UNK
     Dates: start: 20100312, end: 20100101
  8. LEXAPRO [Concomitant]
     Indication: ANXIETY
     Dosage: UNK
     Dates: start: 20100218, end: 20100410

REACTIONS (1)
  - CHOLECYSTITIS [None]
